FAERS Safety Report 5053440-4 (Version None)
Quarter: 2006Q3

REPORT INFORMATION
  Report Type: 
  Country: None (occurrence: None)
  Receive Date: 20060712
  Receipt Date: 20060628
  Transmission Date: 20061208
  Serious: Yes (Other)
  Sender: FDA-Public Use
  Company Number: 14328

PATIENT
  Sex: Female

DRUGS (1)
  1. METHYLENE BLUE [Suspect]
     Indication: SURGERY

REACTIONS (1)
  - ANAPHYLACTIC SHOCK [None]
